FAERS Safety Report 15855794 (Version 1)
Quarter: 2019Q1

REPORT INFORMATION
  Report Type: Spontaneous
  Country: None (occurrence: US)
  Receive Date: 20190122
  Receipt Date: 20190122
  Transmission Date: 20190417
  Serious: Yes (Life-Threatening, Hospitalization, Disabling)
  Sender: FDA-Public Use
  Company Number: US-POPULATION COUNCIL, INC.-2061587

PATIENT
  Age: 25 Year
  Sex: Female
  Weight: 61.5 kg

DRUGS (1)
  1. NORPLANT [Suspect]
     Active Substance: LEVONORGESTREL
     Indication: CONTRACEPTION
     Route: 058
     Dates: start: 19910919, end: 19920129

REACTIONS (10)
  - Cardiac failure congestive [None]
  - Hypokinesia [None]
  - Cardiomyopathy [None]
  - Cardiac valve disease [None]
  - Immune system disorder [None]
  - Mental disorder [None]
  - Visual impairment [None]
  - Nervous system disorder [None]
  - Acute kidney injury [None]
  - Amnesia [None]
